FAERS Safety Report 6026309-6 (Version None)
Quarter: 2008Q4

REPORT INFORMATION
  Report Type: 
  Country: None (occurrence: None)
  Receive Date: 20081224
  Receipt Date: 20081212
  Transmission Date: 20090506
  Serious: Yes (Other)
  Sender: FDA-Public Use
  Company Number: 0173

PATIENT
  Sex: Female

DRUGS (1)
  1. METHYLDOPA [Suspect]
     Dosage: PO
     Route: 048
     Dates: start: 20080319, end: 20080401

REACTIONS (3)
  - ABORTION SPONTANEOUS [None]
  - DRUG EXPOSURE DURING PREGNANCY [None]
  - EXPIRED DRUG ADMINISTERED [None]
